FAERS Safety Report 22693114 (Version 2)
Quarter: 2024Q3

REPORT INFORMATION
  Report Type: Spontaneous
  Country: US (occurrence: US)
  Receive Date: 20230711
  Receipt Date: 20240722
  Transmission Date: 20241017
  Serious: No
  Sender: ASTELLAS
  Company Number: US-ASTELLAS-2023US009131

PATIENT
  Age: 97 Year
  Sex: Male

DRUGS (2)
  1. MYRBETRIQ [Suspect]
     Active Substance: MIRABEGRON
     Indication: Hypertonic bladder
     Route: 065
     Dates: start: 2022
  2. MYRBETRIQ [Suspect]
     Active Substance: MIRABEGRON
     Dosage: UNK UNK, ONCE DAILY (CUTTING THE TABLET IN HALF)
     Route: 065
     Dates: start: 2023

REACTIONS (4)
  - Confusional state [Recovered/Resolved]
  - Wrong technique in product usage process [Unknown]
  - Underdose [Unknown]
  - Intentional product misuse [Unknown]
